FAERS Safety Report 10350931 (Version 1)
Quarter: 2014Q3

REPORT INFORMATION
  Report Type: Spontaneous
  Country: US (occurrence: US)
  Receive Date: 20140730
  Receipt Date: 20140730
  Transmission Date: 20150326
  Serious: No
  Sender: FDA-Public Use
  Company Number: US-009507513-1407USA005983

PATIENT
  Sex: Female
  Weight: 66.21 kg

DRUGS (1)
  1. NEXPLANON [Suspect]
     Active Substance: ETONOGESTREL
     Indication: CONTRACEPTION
     Dosage: 1 ROD ONCE
     Route: 059
     Dates: start: 20130809

REACTIONS (1)
  - Device breakage [Not Recovered/Not Resolved]

NARRATIVE: CASE EVENT DATE: 2014
